FAERS Safety Report 23481901 (Version 1)
Quarter: 2024Q1

REPORT INFORMATION
  Report Type: Spontaneous
  Country: SA (occurrence: SA)
  Receive Date: 20240205
  Receipt Date: 20240205
  Transmission Date: 20240410
  Serious: Yes (Other)
  Sender: FDA-Public Use
  Company Number: SA-SUN PHARMACEUTICAL INDUSTRIES LTD-2024RR-430105

PATIENT
  Age: 32 Year
  Sex: Female

DRUGS (2)
  1. AMIODARONE [Suspect]
     Active Substance: AMIODARONE
     Indication: Ventricular tachycardia
     Dosage: UNK
     Route: 065
  2. PROPYLTHIOURACIL [Suspect]
     Active Substance: PROPYLTHIOURACIL
     Indication: Hyperthyroidism
     Dosage: UNK
     Route: 065

REACTIONS (5)
  - Hyperthyroidism [Recovered/Resolved]
  - Transaminases increased [Recovered/Resolved]
  - Drug ineffective [Unknown]
  - Adverse reaction [Unknown]
  - Rash [Unknown]
